FAERS Safety Report 7812098-9 (Version None)
Quarter: 2011Q4

REPORT INFORMATION
  Report Type: 
  Country: None (occurrence: None)
  Receive Date: 20111013
  Receipt Date: 20111005
  Transmission Date: 20120403
  Serious: Yes (Other)
  Sender: FDA-Public Use
  Company Number: PHHY2011FR89270

PATIENT
  Age: 81 Year
  Sex: Female

DRUGS (1)
  1. METFORMIN HYDROCHLORIDE [Suspect]
     Dosage: 3000 MG, QD

REACTIONS (9)
  - CARDIOVASCULAR DISORDER [None]
  - MALAISE [None]
  - MYALGIA [None]
  - SOMNOLENCE [None]
  - RENAL IMPAIRMENT [None]
  - RESPIRATORY DISORDER [None]
  - DRUG LEVEL INCREASED [None]
  - LACTIC ACIDOSIS [None]
  - NERVOUS SYSTEM DISORDER [None]
